FAERS Safety Report 15296921 (Version 3)
Quarter: 2018Q4

REPORT INFORMATION
  Report Type: Spontaneous
  Country: US (occurrence: US)
  Receive Date: 20180820
  Receipt Date: 20181112
  Transmission Date: 20190204
  Serious: Yes (Hospitalization, Other)
  Sender: FDA-Public Use
  Company Number: US-JNJFOC-20180820016

PATIENT
  Age: 29 Year
  Sex: Male

DRUGS (2)
  1. INVOKANA [Suspect]
     Active Substance: CANAGLIFLOZIN
     Indication: TYPE 2 DIABETES MELLITUS
     Route: 048
     Dates: start: 20130919, end: 20180606
  2. INVOKANA [Suspect]
     Active Substance: CANAGLIFLOZIN
     Indication: TYPE 2 DIABETES MELLITUS
     Route: 048
     Dates: end: 20180706

REACTIONS (6)
  - Acute kidney injury [Unknown]
  - Diabetic ketoacidosis [Unknown]
  - Cellulitis [Recovering/Resolving]
  - Osteomyelitis [Recovering/Resolving]
  - Toe amputation [Recovering/Resolving]
  - Decubitus ulcer [Recovering/Resolving]

NARRATIVE: CASE EVENT DATE: 201505
